FAERS Safety Report 7888032-2 (Version None)
Quarter: 2011Q4

REPORT INFORMATION
  Report Type: 
  Country: None (occurrence: None)
  Receive Date: 20111103
  Receipt Date: 20111028
  Transmission Date: 20120403
  Serious: Yes (Hospitalization)
  Sender: FDA-Public Use
  Company Number: PL-JNJFOC-20111013008

PATIENT
  Sex: Male
  Weight: 115 kg

DRUGS (5)
  1. ABCIXIMAB [Suspect]
     Indication: THROMBOSIS
     Route: 042
     Dates: start: 20110809, end: 20110809
  2. ULTRAVIST 150 [Suspect]
     Indication: SCAN WITH CONTRAST
     Route: 042
     Dates: start: 20110809, end: 20110809
  3. CORHYDRON [Concomitant]
     Indication: PROPHYLAXIS
     Route: 042
     Dates: start: 20110809, end: 20110809
  4. HEPARIN [Concomitant]
     Indication: PRODUCT USED FOR UNKNOWN INDICATION
     Route: 042
     Dates: start: 20110809, end: 20110809
  5. ISOPTIN [Concomitant]
     Indication: PRODUCT USED FOR UNKNOWN INDICATION
     Route: 065
     Dates: start: 20110809, end: 20110809

REACTIONS (1)
  - URTICARIA [None]
